FAERS Safety Report 12580156 (Version 1)
Quarter: 2016Q3

REPORT INFORMATION
  Report Type: Spontaneous
  Country: FR (occurrence: FR)
  Receive Date: 20160721
  Receipt Date: 20160721
  Transmission Date: 20161109
  Serious: Yes (Hospitalization)
  Sender: FDA-Public Use
  Company Number: FR-SA-2016SA129952

PATIENT
  Age: 53 Year
  Sex: Female

DRUGS (4)
  1. STELARA [Concomitant]
     Active Substance: USTEKINUMAB
     Dates: start: 20160620
  2. COAPROVEL [Concomitant]
     Active Substance: HYDROCHLOROTHIAZIDE\IRBESARTAN
     Indication: HYPERTENSION
     Route: 048
  3. AMLOR [Concomitant]
     Active Substance: AMLODIPINE BESYLATE
     Indication: HYPERTENSION
  4. RIFINAH [Suspect]
     Active Substance: ISONIAZID\RIFAMPIN
     Route: 048
     Dates: start: 20160526, end: 20160623

REACTIONS (2)
  - Pustular psoriasis [Recovering/Resolving]
  - Acute generalised exanthematous pustulosis [Recovering/Resolving]

NARRATIVE: CASE EVENT DATE: 201605
